FAERS Safety Report 7072082-2 (Version None)
Quarter: 2010Q4

REPORT INFORMATION
  Report Type: 
  Country: None (occurrence: None)
  Receive Date: 20101029
  Receipt Date: 20101025
  Transmission Date: 20110411
  Serious: Yes (Life-Threatening, Hospitalization)
  Sender: FDA-Public Use
  Company Number: JP-NOVOPROD-316277

PATIENT
  Age: 57 Year
  Sex: Female
  Weight: 45 kg

DRUGS (1)
  1. NOVORAPID CHU FLEXPEN [Suspect]
     Indication: OFF LABEL USE
     Dosage: 180 U, SINGLE
     Route: 058
     Dates: start: 20100928

REACTIONS (6)
  - BRAIN OEDEMA [None]
  - HYPOGLYCAEMIA [None]
  - HYPOGLYCAEMIC COMA [None]
  - INTENTIONAL OVERDOSE [None]
  - MENTAL IMPAIRMENT [None]
  - SUICIDE ATTEMPT [None]
